FAERS Safety Report 15163699 (Version 2)
Quarter: 2018Q3

REPORT INFORMATION
  Report Type: Spontaneous
  Country: US (occurrence: US)
  Receive Date: 20180719
  Receipt Date: 20180925
  Transmission Date: 20181010
  Serious: Yes (Hospitalization)
  Sender: FDA-Public Use
  Company Number: US-JNJFOC-20180708968

PATIENT
  Age: 19 Year
  Sex: Female

DRUGS (7)
  1. QVAR [Concomitant]
     Active Substance: BECLOMETHASONE DIPROPIONATE
     Indication: ASTHMA
     Route: 065
  2. XARELTO [Suspect]
     Active Substance: RIVAROXABAN
     Indication: PULMONARY EMBOLISM
     Route: 048
     Dates: start: 20161021, end: 20161101
  3. MOTRIN [Suspect]
     Active Substance: IBUPROFEN
     Indication: BACK PAIN
     Route: 065
  4. TYLENOL [Concomitant]
     Active Substance: ACETAMINOPHEN
     Indication: BACK PAIN
     Route: 065
  5. METOPROLOL. [Concomitant]
     Active Substance: METOPROLOL
     Indication: HYPERTENSION
     Route: 065
  6. MOTRIN [Suspect]
     Active Substance: IBUPROFEN
     Route: 065
  7. PROVENTIL [Concomitant]
     Active Substance: ALBUTEROL
     Indication: ASTHMA
     Route: 065

REACTIONS (2)
  - Gastrointestinal haemorrhage [Unknown]
  - Vaginal haemorrhage [Unknown]

NARRATIVE: CASE EVENT DATE: 20161101
